FAERS Safety Report 7940043-4 (Version None)
Quarter: 2011Q4

REPORT INFORMATION
  Report Type: 
  Country: None (occurrence: None)
  Receive Date: 20111125
  Receipt Date: 20111111
  Transmission Date: 20120403
  Serious: Yes (Hospitalization, Other)
  Sender: FDA-Public Use
  Company Number: PL-WATSON-2011-17853

PATIENT
  Age: 56 Year
  Sex: Male

DRUGS (2)
  1. BETAMETHASONE [Suspect]
     Indication: CHRONIC OBSTRUCTIVE PULMONARY DISEASE
     Dosage: 2-4 TIMES PER WEEK
     Route: 051
  2. ENTOCORT EC [Suspect]
     Indication: CHRONIC OBSTRUCTIVE PULMONARY DISEASE
     Dosage: UNK UNK, UNKNOWN
     Route: 050

REACTIONS (13)
  - NAUSEA [None]
  - PATHOLOGICAL FRACTURE [None]
  - SHOCK [None]
  - BLOOD PRESSURE DECREASED [None]
  - CONDITION AGGRAVATED [None]
  - ADRENAL INSUFFICIENCY [None]
  - ASTHENIA [None]
  - ABDOMINAL PAIN [None]
  - HEART RATE IRREGULAR [None]
  - HYPONATRAEMIA [None]
  - OSTEOPOROSIS [None]
  - DYSPNOEA [None]
  - ACUTE MYOCARDIAL INFARCTION [None]
